FAERS Safety Report 11098555 (Version 1)
Quarter: 2015Q2

REPORT INFORMATION
  Report Type: Spontaneous
  Country: US (occurrence: US)
  Receive Date: 20150507
  Receipt Date: 20150507
  Transmission Date: 20150821
  Serious: No
  Sender: FDA-Public Use
  Company Number: US-AMGEN-USASP2015007438

PATIENT
  Age: 90 Year
  Sex: Male

DRUGS (6)
  1. ARANESP [Suspect]
     Active Substance: DARBEPOETIN ALFA
  2. ARANESP [Suspect]
     Active Substance: DARBEPOETIN ALFA
     Dosage: UNK
     Route: 065
  3. ARANESP [Suspect]
     Active Substance: DARBEPOETIN ALFA
     Indication: NEPHROGENIC ANAEMIA
     Dosage: 200 MUG, UNK
     Route: 065
     Dates: start: 201408
  4. ARANESP [Suspect]
     Active Substance: DARBEPOETIN ALFA
  5. ARANESP [Suspect]
     Active Substance: DARBEPOETIN ALFA
  6. ARANESP [Suspect]
     Active Substance: DARBEPOETIN ALFA
     Dosage: UNK
     Route: 065
     Dates: start: 20141219

REACTIONS (2)
  - Haemoglobin abnormal [Unknown]
  - No therapeutic response [Unknown]
